FAERS Safety Report 11587078 (Version 1)
Quarter: 2015Q3

REPORT INFORMATION
  Report Type: Spontaneous
  Country: US (occurrence: US)
  Receive Date: 20150916
  Receipt Date: 20150916
  Transmission Date: 20151125
  Serious: Yes (Other)
  Sender: FDA-Public Use
  Company Number: US-ELI_LILLY_AND_COMPANY-US200802003625

PATIENT
  Age: 86 Year
  Sex: Female
  Weight: 70.75 kg

DRUGS (16)
  1. COUMADIN [Concomitant]
     Active Substance: WARFARIN SODIUM
  2. PREDNISONE. [Concomitant]
     Active Substance: PREDNISONE
  3. TRAZODONE [Concomitant]
     Active Substance: TRAZODONE HYDROCHLORIDE
  4. DIGITEK [Concomitant]
     Active Substance: DIGOXIN
  5. VITAMIN D [Concomitant]
     Active Substance: CHOLECALCIFEROL
  6. POTASSIUM CHLORIDE. [Concomitant]
     Active Substance: POTASSIUM CHLORIDE
  7. FORTEO [Suspect]
     Active Substance: TERIPARATIDE
     Indication: SPINAL FRACTURE
     Dosage: 20 UG, DAILY (1/D)
     Dates: start: 20080131, end: 20080215
  8. OMEPRAZOLE. [Concomitant]
     Active Substance: OMEPRAZOLE
  9. GLYBURIDE. [Concomitant]
     Active Substance: GLYBURIDE
  10. NAPROXEN. [Concomitant]
     Active Substance: NAPROXEN
  11. LASIX [Concomitant]
     Active Substance: FUROSEMIDE
  12. PULMICORT TURBUHALER [Concomitant]
     Active Substance: BUDESONIDE
  13. CALCIUM [Concomitant]
     Active Substance: CALCIUM
  14. DETROL /USA/ [Concomitant]
  15. DILTIAZEM [Concomitant]
     Active Substance: DILTIAZEM
  16. GABAPENTIN. [Concomitant]
     Active Substance: GABAPENTIN

REACTIONS (3)
  - Medication error [Unknown]
  - Injection site pain [Recovered/Resolved]
  - Accidental overdose [Unknown]

NARRATIVE: CASE EVENT DATE: 20080214
